FAERS Safety Report 13425147 (Version 1)
Quarter: 2017Q2

REPORT INFORMATION
  Report Type: Spontaneous
  Country: US (occurrence: US)
  Receive Date: 20170411
  Receipt Date: 20170411
  Transmission Date: 20170830
  Serious: No
  Sender: FDA-Public Use
  Company Number: US-BIOGEN-2017BI00382419

PATIENT
  Sex: Female

DRUGS (1)
  1. TECFIDERA [Suspect]
     Active Substance: DIMETHYL FUMARATE
     Indication: MULTIPLE SCLEROSIS
     Route: 065
     Dates: start: 20140903

REACTIONS (7)
  - Swelling [Unknown]
  - Contusion [Unknown]
  - Frustration tolerance decreased [Unknown]
  - Depression [Unknown]
  - Fatigue [Unknown]
  - Memory impairment [Unknown]
  - Multiple sclerosis relapse [Unknown]
